FAERS Safety Report 6375282-X (Version None)
Quarter: 2009Q3

REPORT INFORMATION
  Report Type: 
  Country: None (occurrence: None)
  Receive Date: 20090924
  Receipt Date: 20090914
  Transmission Date: 20100115
  Serious: Yes (Death)
  Sender: FDA-Public Use
  Company Number: A0807494A

PATIENT
  Age: 33 Year
  Sex: Female
  Weight: 100 kg

DRUGS (1)
  1. ZANAMIVIR [Suspect]
     Dosage: 600MG TWICE PER DAY
     Route: 042
     Dates: start: 20090910, end: 20090912

REACTIONS (1)
  - DEATH [None]
